FAERS Safety Report 5234261-6 (Version None)
Quarter: 2007Q1

REPORT INFORMATION
  Report Type: 
  Country: None (occurrence: None)
  Receive Date: 20070207
  Receipt Date: 20070119
  Transmission Date: 20070707
  Serious: Yes (Hospitalization)
  Sender: FDA-Public Use
  Company Number: 2007000147

PATIENT

DRUGS (1)
  1. TARCEVA [Suspect]
     Dosage: 150 MG (QD), ORAL
     Route: 048

REACTIONS (2)
  - ASPIRATION [None]
  - DYSPHAGIA [None]
